FAERS Safety Report 25688819 (Version 1)
Quarter: 2025Q3

REPORT INFORMATION
  Report Type: Spontaneous
  Country: US (occurrence: US)
  Receive Date: 20250818
  Receipt Date: 20250818
  Transmission Date: 20251020
  Serious: Yes (Other)
  Sender: COOPERSURGICAL
  Company Number: US-COOPERSURGICAL, INC.-2025CPS005986

PATIENT
  Age: 30 Year
  Sex: Female
  Weight: 56.236 kg

DRUGS (1)
  1. PARAGARD T 380A [Suspect]
     Active Substance: COPPER
     Indication: Contraception
     Route: 015
     Dates: start: 20121214

REACTIONS (20)
  - Surgery [Recovered/Resolved]
  - Uterine leiomyoma [Unknown]
  - Ovarian cyst [Unknown]
  - Hysterectomy [Recovered/Resolved]
  - Salpingectomy [Recovered/Resolved]
  - Device breakage [Recovered/Resolved]
  - Foreign body in reproductive tract [Recovered/Resolved]
  - Complication of device removal [Recovered/Resolved]
  - Embedded device [Recovered/Resolved]
  - Emotional distress [Unknown]
  - Sensation of foreign body [Recovered/Resolved]
  - Abdominal distension [Unknown]
  - Adenomyosis [Unknown]
  - Uterine adhesions [Unknown]
  - Endometriosis [Unknown]
  - Complication associated with device [Unknown]
  - Heavy menstrual bleeding [Unknown]
  - Pelvic pain [Unknown]
  - Device expulsion [Recovered/Resolved]
  - Dysmenorrhoea [Unknown]

NARRATIVE: CASE EVENT DATE: 20130113
